FAERS Safety Report 6077599-5 (Version None)
Quarter: 2009Q1

REPORT INFORMATION
  Report Type: 
  Country: None (occurrence: None)
  Receive Date: 20090213
  Receipt Date: 20090202
  Transmission Date: 20090719
  Serious: Yes (Hospitalization)
  Sender: FDA-Public Use
  Company Number: DE-WYE-H08096709

PATIENT
  Sex: Female

DRUGS (3)
  1. PANTOZOL [Suspect]
     Indication: HELICOBACTER INFECTION
  2. CLARITHROMYCIN [Suspect]
     Indication: HELICOBACTER INFECTION
  3. AMOXICILLIN [Suspect]
     Indication: HELICOBACTER INFECTION

REACTIONS (3)
  - ERYTHEMA MULTIFORME [None]
  - HYPERSENSITIVITY [None]
  - SKIN BURNING SENSATION [None]
